FAERS Safety Report 4462611-7 (Version None)
Quarter: 2004Q3

REPORT INFORMATION
  Report Type: 
  Country: None (occurrence: None)
  Receive Date: 20040928
  Receipt Date: 20040922
  Transmission Date: 20050211
  Serious: Yes (Hospitalization)
  Sender: FDA-Public Use
  Company Number: 200410380BFR

PATIENT
  Age: 56 Year
  Sex: Male
  Weight: 75 kg

DRUGS (4)
  1. MOXIFLOXACIN HYDROCHLORIDE [Suspect]
     Indication: INFECTION
     Dosage: 400 MG, TOTAL DAILY, ORAL
     Route: 048
  2. MOXIFLOXACIN HYDROCHLORIDE [Suspect]
     Indication: NASAL POLYPS
     Dosage: 400 MG, TOTAL DAILY, ORAL
     Route: 048
  3. CELESTENE [Concomitant]
  4. SOLUPRED [Concomitant]

REACTIONS (5)
  - ASTHENIA [None]
  - DRUG INEFFECTIVE [None]
  - MYALGIA [None]
  - PYREXIA [None]
  - TREMOR [None]
